FAERS Safety Report 8692120 (Version 3)
Quarter: 2013Q1

REPORT INFORMATION
  Report Type: Report from Study
  Country: GB (occurrence: GB)
  Receive Date: 20120730
  Receipt Date: 20130305
  Transmission Date: 20140127
  Serious: Yes (Death, Hospitalization)
  Sender: FDA-Public Use
  Company Number: GB-ABBOTT-12P-167-0960851-00

PATIENT
  Age: 72 Year
  Sex: Male
  Weight: 57 kg

DRUGS (3)
  1. HUMIRA 40 MG/ 0.8 ML PRE-FILLED SYRINGE [Suspect]
     Indication: RHEUMATOID ARTHRITIS
     Route: 058
     Dates: start: 20050609
  2. STEROIDS [Concomitant]
     Indication: PRODUCT USED FOR UNKNOWN INDICATION
  3. METHOTREXATE [Concomitant]
     Indication: PRODUCT USED FOR UNKNOWN INDICATION

REACTIONS (7)
  - Intestinal ischaemia [Fatal]
  - Atrial fibrillation [Fatal]
  - Renal failure chronic [Fatal]
  - Amyloidosis [Fatal]
  - Rheumatoid arthritis [Fatal]
  - Clostridium difficile colitis [Fatal]
  - Cerebrovascular accident [Not Recovered/Not Resolved]
